FAERS Safety Report 13652466 (Version 4)
Quarter: 2017Q3

REPORT INFORMATION
  Report Type: Report from Study
  Country: US (occurrence: US)
  Receive Date: 20170614
  Receipt Date: 20170721
  Transmission Date: 20171127
  Serious: Yes (Death, Hospitalization)
  Sender: FDA-Public Use
  Company Number: US-ACTELION-A-US2017-149884

PATIENT
  Age: 61 Year
  Sex: Female
  Weight: 54.42 kg

DRUGS (3)
  1. UPTRAVI [Suspect]
     Active Substance: SELEXIPAG
     Indication: PULMONARY ARTERIAL HYPERTENSION
     Dosage: UNK
     Route: 048
     Dates: start: 20170116
  2. UPTRAVI [Suspect]
     Active Substance: SELEXIPAG
     Dosage: 800 MCG, BID
     Route: 048
     Dates: start: 20170306
  3. OPSUMIT [Suspect]
     Active Substance: MACITENTAN
     Indication: PULMONARY ARTERIAL HYPERTENSION
     Dosage: 10 MG, QD
     Route: 048
     Dates: start: 201612

REACTIONS (19)
  - Staphylococcal infection [Unknown]
  - Pain in extremity [Unknown]
  - Disease progression [Fatal]
  - Chest pain [Unknown]
  - Limb injury [Unknown]
  - Respiratory distress [Unknown]
  - Scleroderma [Fatal]
  - Asthenia [Unknown]
  - Weight increased [Unknown]
  - Acidosis [Recovering/Resolving]
  - Dyspnoea [Unknown]
  - Headache [Unknown]
  - Organ failure [Fatal]
  - Tendon injury [Unknown]
  - Skin ulcer [Unknown]
  - Haemoglobin decreased [Unknown]
  - Decreased appetite [Unknown]
  - Cardiac failure [Fatal]
  - Peripheral swelling [Unknown]

NARRATIVE: CASE EVENT DATE: 2017
